FAERS Safety Report 4928985-5 (Version None)
Quarter: 2006Q1

REPORT INFORMATION
  Report Type: 
  Country: None (occurrence: None)
  Receive Date: 20060301
  Receipt Date: 20060223
  Transmission Date: 20060701
  Serious: Yes (Death)
  Sender: FDA-Public Use
  Company Number: FR-GLAXOSMITHKLINE-B0413761A

PATIENT
  Age: 79 Year
  Sex: Female
  Weight: 80 kg

DRUGS (7)
  1. AUGMENTIN '125' [Suspect]
     Indication: ANTIBIOTIC PROPHYLAXIS
     Dosage: 2G SINGLE DOSE
     Route: 042
     Dates: start: 20050907, end: 20050907
  2. DIPRIVAN [Suspect]
     Indication: INDUCTION OF ANAESTHESIA
     Dosage: 150MG SINGLE DOSE
     Route: 042
     Dates: start: 20050907, end: 20050907
  3. SUFENTANIL CITRATE [Suspect]
     Indication: INDUCTION OF ANAESTHESIA
     Dosage: 15MCG SINGLE DOSE
     Route: 042
     Dates: start: 20050907, end: 20050907
  4. AMLOR [Concomitant]
     Route: 065
  5. EUPRESSYL [Concomitant]
     Route: 065
  6. KARDEGIC [Concomitant]
     Route: 065
  7. BCG [Concomitant]
     Indication: BLADDER NEOPLASM
     Route: 065

REACTIONS (15)
  - ANAPHYLACTIC SHOCK [None]
  - ANURIA [None]
  - BRADYCARDIA [None]
  - BUNDLE BRANCH BLOCK LEFT [None]
  - CARDIAC ARREST [None]
  - CARDIOVERSION [None]
  - ELECTROCARDIOGRAM REPOLARISATION ABNORMALITY [None]
  - HAEMODYNAMIC INSTABILITY [None]
  - HISTAMINE LEVEL INCREASED [None]
  - HYPOTENSION [None]
  - ISCHAEMIC HEPATITIS [None]
  - MUSCLE DISORDER [None]
  - RENAL DISORDER [None]
  - SHOCK [None]
  - TRYPTASE INCREASED [None]
